FAERS Safety Report 8286166-4 (Version None)
Quarter: 2012Q2

REPORT INFORMATION
  Report Type: 
  Country: None (occurrence: None)
  Receive Date: 20120416
  Receipt Date: 20120405
  Transmission Date: 20120825
  Serious: No
  Sender: FDA-Public Use
  Company Number: US-BIOGENIDEC-2012BI012517

PATIENT
  Age: 20 Year
  Sex: Male

DRUGS (4)
  1. KEPPRA [Concomitant]
     Indication: CONVULSION
  2. UNKNOWN STEROIDS [Concomitant]
  3. VIMPAT [Concomitant]
     Indication: CONVULSION
  4. TYSABRI [Suspect]
     Indication: MULTIPLE SCLEROSIS
     Route: 042
     Dates: start: 20120113

REACTIONS (3)
  - FATIGUE [None]
  - VIITH NERVE PARALYSIS [None]
  - DISORIENTATION [None]
